FAERS Safety Report 25447309 (Version 1)
Quarter: 2025Q2

REPORT INFORMATION
  Report Type: Spontaneous
  Country: US (occurrence: US)
  Receive Date: 20250617
  Receipt Date: 20250617
  Transmission Date: 20250717
  Serious: Yes (Hospitalization)
  Sender: Steriscience PTE
  Company Number: US-STERISCIENCE B.V.-2025-ST-001137

PATIENT
  Age: 66 Year
  Sex: Female

DRUGS (1)
  1. FOCINVEZ [Suspect]
     Active Substance: FOSAPREPITANT DIMEGLUMINE
     Indication: Product used for unknown indication
     Dosage: 150 MILLIGRAM, Q2W,  INJECT 150MG INTRAVENOUSLY ONCE, STARTING AT TREATMENT START TIME EVERY 14 DAYS
     Route: 042

REACTIONS (1)
  - Abdominal pain [Unknown]

NARRATIVE: CASE EVENT DATE: 20250604
